FAERS Safety Report 12249505 (Version 2)
Quarter: 2016Q2

REPORT INFORMATION
  Report Type: Report from Study
  Country: US (occurrence: US)
  Receive Date: 20160408
  Receipt Date: 20160502
  Transmission Date: 20160815
  Serious: Yes (Life-Threatening, Hospitalization, Other)
  Sender: FDA-Public Use
  Company Number: US-BRISTOL-MYERS SQUIBB COMPANY-BMS-2016-023745

PATIENT
  Age: 91 Year
  Sex: Male
  Weight: 77.98 kg

DRUGS (5)
  1. LEUCOVORIN CALCIUM. [Suspect]
     Active Substance: LEUCOVORIN CALCIUM
     Indication: PANCREATIC CARCINOMA
     Dosage: 400 MG/M2, Q2WK
     Route: 042
     Dates: start: 20160222, end: 20160314
  2. OXALIPLATIN. [Suspect]
     Active Substance: OXALIPLATIN
     Indication: PANCREATIC CARCINOMA
  3. OXALIPLATIN. [Suspect]
     Active Substance: OXALIPLATIN
     Indication: PANCREATIC CARCINOMA
     Dosage: 85 MG/M2, Q2WK
     Route: 042
     Dates: start: 20160222, end: 20160314
  4. DASATINIB [Suspect]
     Active Substance: DASATINIB
     Indication: PANCREATIC CARCINOMA
     Dosage: 150 MG, UNK
     Route: 048
     Dates: start: 20160222, end: 20160319
  5. FLUOROURACIL. [Suspect]
     Active Substance: FLUOROURACIL
     Indication: PANCREATIC CARCINOMA
     Dosage: 2400 MG/M2, Q2WK
     Route: 042
     Dates: start: 20160222, end: 20160314

REACTIONS (4)
  - Atrial fibrillation [Recovering/Resolving]
  - Syncope [Unknown]
  - Coronary artery disease [Unknown]
  - Fall [Unknown]

NARRATIVE: CASE EVENT DATE: 20160320
